FAERS Safety Report 11205238 (Version 2)
Quarter: 2015Q2

REPORT INFORMATION
  Report Type: Report from Study
  Country: GB (occurrence: GB)
  Receive Date: 20150622
  Receipt Date: 20150629
  Transmission Date: 20150821
  Serious: Yes (Hospitalization)
  Sender: FDA-Public Use
  Company Number: GB-GLAXOSMITHKLINE-GB2015GSK085224

PATIENT
  Age: 74 Year
  Sex: Female
  Weight: 77.6 kg

DRUGS (10)
  1. OFATUMUMAB [Suspect]
     Active Substance: OFATUMUMAB
     Indication: CHRONIC LYMPHOCYTIC LEUKAEMIA
     Dosage: 300 MG, CYC
     Route: 042
     Dates: start: 20141015
  2. G-CSF [Concomitant]
     Active Substance: GRANULOCYTE COLONY-STIMULATING FACTOR NOS
  3. PARACETAMOL [Concomitant]
     Active Substance: ACETAMINOPHEN
  4. ALLOPURINOL. [Concomitant]
     Active Substance: ALLOPURINOL
  5. METOCLOPRAMIDE. [Concomitant]
     Active Substance: METOCLOPRAMIDE
  6. ACICLOVIR [Concomitant]
     Active Substance: ACYCLOVIR
  7. HYDROCORTISONE. [Concomitant]
     Active Substance: HYDROCORTISONE
  8. CHLORAMBUCIL [Suspect]
     Active Substance: CHLORAMBUCIL
     Indication: CHRONIC LYMPHOCYTIC LEUKAEMIA
     Dosage: UNK, CYC
     Route: 048
     Dates: start: 20141015
  9. CHLORPHENIRAMINE [Concomitant]
     Active Substance: CHLORPHENIRAMINE
  10. COTRIMOXAZOLE [Concomitant]
     Active Substance: SULFAMETHOXAZOLE\TRIMETHOPRIM

REACTIONS (1)
  - Oral candidiasis [Recovered/Resolved]

NARRATIVE: CASE EVENT DATE: 20141018
